FAERS Safety Report 14127380 (Version 1)
Quarter: 2017Q4

REPORT INFORMATION
  Report Type: Spontaneous
  Country: US (occurrence: US)
  Receive Date: 20171026
  Receipt Date: 20171026
  Transmission Date: 20180321
  Serious: Yes (Other)
  Sender: FDA-Public Use
  Company Number: US-TEVA-727726USA

PATIENT
  Sex: Female

DRUGS (2)
  1. CARBIDOPA AND LEVODOPA [Suspect]
     Active Substance: CARBIDOPA\LEVODOPA
     Indication: DYSTONIA
     Route: 065
  2. CARBIDOPA AND LEVODOPA [Suspect]
     Active Substance: CARBIDOPA\LEVODOPA
     Indication: PARKINSON^S DISEASE

REACTIONS (7)
  - Drug intolerance [Unknown]
  - Dyskinesia [Unknown]
  - Product substitution issue [Unknown]
  - Muscle spasms [Unknown]
  - Intentional product use issue [Unknown]
  - Dystonia [Unknown]
  - Dyspnoea [Unknown]
